FAERS Safety Report 6560761-2 (Version None)
Quarter: 2010Q1

REPORT INFORMATION
  Report Type: 
  Country: None (occurrence: None)
  Receive Date: 20100129
  Receipt Date: 20090925
  Transmission Date: 20100710
  Serious: No
  Sender: FDA-Public Use
  Company Number: US-ABBOTT-09P-163-0599820-00

PATIENT
  Sex: Female
  Weight: 76.726 kg

DRUGS (3)
  1. HUMIRA [Suspect]
     Indication: POLYARTHRITIS
     Dates: start: 20090601
  2. HUMIRA [Suspect]
     Indication: COLITIS ULCERATIVE
  3. CAPADEX [Concomitant]
     Indication: REFLUX OESOPHAGITIS

REACTIONS (1)
  - DRUG DOSE OMISSION [None]
